FAERS Safety Report 23114944 (Version 1)
Quarter: 2023Q4

REPORT INFORMATION
  Report Type: Spontaneous
  Country: SI (occurrence: SI)
  Receive Date: 20231027
  Receipt Date: 20231027
  Transmission Date: 20240109
  Serious: Yes (Hospitalization, Other)
  Sender: FDA-Public Use
  Company Number: SI-JNJFOC-20231041400

PATIENT
  Age: 65 Year
  Sex: Male

DRUGS (8)
  1. ERLEADA [Suspect]
     Active Substance: APALUTAMIDE
     Indication: Prostate cancer
     Route: 048
     Dates: start: 202302
  2. EMPAGLIFLOZIN [Concomitant]
     Active Substance: EMPAGLIFLOZIN
  3. BISOPROLOL [Concomitant]
     Active Substance: BISOPROLOL\BISOPROLOL FUMARATE
  4. AMIODARONE [Concomitant]
     Active Substance: AMIODARONE
  5. BICALUTAMIDE [Concomitant]
     Active Substance: BICALUTAMIDE
  6. METAMIZOLE [Concomitant]
     Active Substance: METAMIZOLE
  7. APIXABAN [Concomitant]
     Active Substance: APIXABAN
  8. ZOLPIDEM [Concomitant]
     Active Substance: ZOLPIDEM TARTRATE

REACTIONS (4)
  - Prostate cancer [Unknown]
  - General physical health deterioration [Unknown]
  - Hypothyroidism [Unknown]
  - Abdominal pain upper [Unknown]

NARRATIVE: CASE EVENT DATE: 20230301
